FAERS Safety Report 7701005-5 (Version None)
Quarter: 2011Q3

REPORT INFORMATION
  Report Type: 
  Country: None (occurrence: None)
  Receive Date: 20110822
  Receipt Date: 20110809
  Transmission Date: 20111222
  Serious: Yes (Hospitalization, Other)
  Sender: FDA-Public Use
  Company Number: US-BAYER-201040346NA

PATIENT
  Age: 41 Year
  Sex: Female
  Weight: 109 kg

DRUGS (1)
  1. YAZ [Suspect]
     Indication: PREMENSTRUAL SYNDROME
     Dosage: UNK UNK, QD
     Route: 048
     Dates: start: 20100101, end: 20100701

REACTIONS (3)
  - PNEUMOTHORAX [None]
  - PULMONARY EMBOLISM [None]
  - PAIN [None]
